FAERS Safety Report 9781158 (Version 2)
Quarter: 2014Q1

REPORT INFORMATION
  Report Type: Spontaneous
  Country: US (occurrence: US)
  Receive Date: 20131224
  Receipt Date: 20140110
  Transmission Date: 20141002
  Serious: No
  Sender: FDA-Public Use
  Company Number: US-009507513-1312USA010601

PATIENT
  Sex: 0

DRUGS (4)
  1. VICTRELIS [Suspect]
     Indication: HEPATITIS C
     Route: 048
  2. REBETOL [Suspect]
     Indication: HEPATITIS C
     Route: 048
  3. PEGINTERFERON ALFA-2A [Suspect]
     Indication: HEPATITIS C
  4. CYCLOSPORINE [Concomitant]
     Indication: PROPHYLAXIS AGAINST TRANSPLANT REJECTION

REACTIONS (1)
  - Adverse drug reaction [Unknown]
